FAERS Safety Report 8168376-X (Version None)
Quarter: 2012Q1

REPORT INFORMATION
  Report Type: 
  Country: None (occurrence: None)
  Receive Date: 20120227
  Receipt Date: 20120217
  Transmission Date: 20120608
  Serious: Yes (Hospitalization, Disabling)
  Sender: FDA-Public Use
  Company Number: US-MERCK-1106USA01822

PATIENT
  Age: 58 Year
  Sex: Female
  Weight: 55 kg

DRUGS (1)
  1. FOSAMAX [Suspect]
     Indication: OSTEOPOROSIS
     Route: 048
     Dates: start: 20051115, end: 20100729

REACTIONS (7)
  - FEMUR FRACTURE [None]
  - CATARACT [None]
  - HYPERTENSION [None]
  - HYPERSENSITIVITY [None]
  - ADVERSE EVENT [None]
  - ANAEMIA [None]
  - MYOSITIS OSSIFICANS [None]
